FAERS Safety Report 15147653 (Version 1)
Quarter: 2018Q3

REPORT INFORMATION
  Report Type: Spontaneous
  Country: US (occurrence: US)
  Receive Date: 20180716
  Receipt Date: 20180716
  Transmission Date: 20181010
  Serious: No
  Sender: FDA-Public Use
  Company Number: US-PFIZER INC-2018284100

PATIENT
  Age: 47 Year
  Sex: Female

DRUGS (1)
  1. SOMAVERT [Suspect]
     Active Substance: PEGVISOMANT
     Dosage: 10 MG, DAILY

REACTIONS (7)
  - Dysphagia [Unknown]
  - Thyroid mass [Unknown]
  - Impaired fasting glucose [Unknown]
  - Lipids abnormal [Unknown]
  - Arthropathy [Unknown]
  - Weight increased [Unknown]
  - Headache [Unknown]
